FAERS Safety Report 5312846-6 (Version None)
Quarter: 2007Q2

REPORT INFORMATION
  Report Type: 
  Country: None (occurrence: None)
  Receive Date: 20070430
  Receipt Date: 20070418
  Transmission Date: 20071010
  Serious: Yes (Other)
  Sender: FDA-Public Use
  Company Number: US-PFIZER INC-2007032179

PATIENT
  Sex: Female
  Weight: 106.81 kg

DRUGS (2)
  1. CHANTIX [Suspect]
     Indication: SMOKING CESSATION THERAPY
     Dates: start: 20070401
  2. ADVIL [Concomitant]

REACTIONS (2)
  - CHEST PAIN [None]
  - MOBILITY DECREASED [None]
